FAERS Safety Report 16909185 (Version 2)
Quarter: 2019Q4

REPORT INFORMATION
  Report Type: Spontaneous
  Country: US (occurrence: US)
  Receive Date: 20191011
  Receipt Date: 20191106
  Transmission Date: 20200122
  Serious: Yes (Hospitalization)
  Sender: FDA-Public Use
  Company Number: US-VERTEX PHARMACEUTICALS-2019-009719

PATIENT
  Age: 26 Year
  Sex: Male

DRUGS (2)
  1. SYMDEKO [Suspect]
     Active Substance: IVACAFTOR\TEZACAFTOR
     Indication: CYSTIC FIBROSIS
     Dosage: 100MG TEZACAFTOR/150MG IVACAFTOR AM; 150MG IVACAFTOR PM
     Route: 048
     Dates: start: 20190919, end: 201910
  2. LINEZOLID. [Suspect]
     Active Substance: LINEZOLID
     Indication: PRODUCT USED FOR UNKNOWN INDICATION
     Dosage: UNK
     Route: 065

REACTIONS (6)
  - Nausea [Unknown]
  - Fatigue [Unknown]
  - Dizziness [Unknown]
  - Infective pulmonary exacerbation of cystic fibrosis [Unknown]
  - Abdominal pain [Unknown]
  - Headache [Unknown]

NARRATIVE: CASE EVENT DATE: 2019
